FAERS Safety Report 8034005-9 (Version None)
Quarter: 2012Q1

REPORT INFORMATION
  Report Type: 
  Country: None (occurrence: None)
  Receive Date: 20120110
  Receipt Date: 20120102
  Transmission Date: 20120608
  Serious: Yes (Hospitalization)
  Sender: FDA-Public Use
  Company Number: FR-ASTRAZENECA-2012SE00769

PATIENT
  Age: 33454 Day
  Sex: Male

DRUGS (7)
  1. ESCITALOPRAM OXALATE [Concomitant]
     Indication: MAJOR DEPRESSION
     Route: 048
     Dates: start: 20111117
  2. CIPROFLOXACIN [Suspect]
     Indication: GASTRIC ULCER
     Route: 042
     Dates: start: 20111202, end: 20111207
  3. ESCITALOPRAM OXALATE [Concomitant]
     Indication: DEPRESSION
     Route: 048
     Dates: start: 20111117
  4. ALLOPURINOL [Concomitant]
     Route: 048
  5. ASPIRIN [Concomitant]
     Route: 048
  6. NEXIUM [Suspect]
     Indication: GASTRIC ULCER
     Route: 048
     Dates: start: 20111202, end: 20111209
  7. REPAGLINIDE [Concomitant]
     Route: 058

REACTIONS (1)
  - RENAL FAILURE ACUTE [None]
